FAERS Safety Report 25750752 (Version 1)
Quarter: 2025Q3

REPORT INFORMATION
  Report Type: Spontaneous
  Country: GB (occurrence: GB)
  Receive Date: 20250902
  Receipt Date: 20250902
  Transmission Date: 20251021
  Serious: Yes (Disabling, Other)
  Sender: MYLAN
  Company Number: None

PATIENT
  Age: 29 Year
  Sex: Male
  Weight: 56 kg

DRUGS (4)
  1. SERTRALINE [Suspect]
     Active Substance: SERTRALINE HYDROCHLORIDE
     Indication: Anxiety
     Dosage: 50 MILLIGRAM, QD
     Dates: start: 20250207, end: 20250822
  2. SERTRALINE [Suspect]
     Active Substance: SERTRALINE HYDROCHLORIDE
     Dosage: 50 MILLIGRAM, QD
     Route: 065
     Dates: start: 20250207, end: 20250822
  3. SERTRALINE [Suspect]
     Active Substance: SERTRALINE HYDROCHLORIDE
     Dosage: 50 MILLIGRAM, QD
     Route: 065
     Dates: start: 20250207, end: 20250822
  4. SERTRALINE [Suspect]
     Active Substance: SERTRALINE HYDROCHLORIDE
     Dosage: 50 MILLIGRAM, QD
     Dates: start: 20250207, end: 20250822

REACTIONS (7)
  - Myoclonus [Unknown]
  - Serotonin syndrome [Recovered/Resolved with Sequelae]
  - Confusional state [Unknown]
  - Akathisia [Unknown]
  - Bedridden [Unknown]
  - Fear [Unknown]
  - Hyperreflexia [Unknown]

NARRATIVE: CASE EVENT DATE: 20250210
